FAERS Safety Report 9848666 (Version 1)
Quarter: 2013Q4

REPORT INFORMATION
  Report Type: Spontaneous
  Country: US (occurrence: None)
  Receive Date: 20131224
  Receipt Date: 20131224
  Transmission Date: 20140711
  Serious: Yes (Hospitalization, Other)
  Sender: FDA-Public Use
  Company Number: PHEH2013US008089

PATIENT
  Age: 59 Year
  Sex: Female

DRUGS (6)
  1. CLOZARIL (CLOZAPINE) TABLET, 100MG [Suspect]
     Indication: SCHIZOPHRENIA
     Route: 048
     Dates: start: 20130305
  2. DEPAKOTE (VALPROATE SEMISODIUM) [Suspect]
     Indication: SCHIZOPHRENIA
     Dates: start: 20130305, end: 20130405
  3. LITHIUM (LITHIUM) [Concomitant]
  4. AMLODIPINE (AMLODIPINE) [Concomitant]
  5. LEVOTHYROXIN (LEVOTHYROXINE SODIUM) [Concomitant]
  6. METFORMIN (METFORMIN) [Concomitant]

REACTIONS (3)
  - Convulsion [None]
  - Sedation [None]
  - Confusional state [None]
